FAERS Safety Report 10907350 (Version 1)
Quarter: 2015Q1

REPORT INFORMATION
  Report Type: Spontaneous
  Country: US (occurrence: None)
  Receive Date: 20150309
  Receipt Date: 20150309
  Transmission Date: 20150721
  Serious: Yes (Life-Threatening, Hospitalization)
  Sender: FDA-Public Use
  Company Number: None

PATIENT
  Age: 72 Year
  Sex: Female
  Weight: 68.04 kg

DRUGS (9)
  1. DULOXATINE [Concomitant]
  2. LIALDA [Suspect]
     Active Substance: MESALAMINE
     Indication: COLITIS
     Dosage: 4 TABLETS ONCE DAILY TAKEN BY MOUTH
     Route: 048
     Dates: start: 20141107, end: 20141118
  3. FLUTICASONE PROPIONATE NASAL SPRAY [Concomitant]
     Active Substance: FLUTICASONE PROPIONATE
  4. CENTRUM SILVER VITAMIN [Concomitant]
  5. SIMVASTATIN. [Concomitant]
     Active Substance: SIMVASTATIN
  6. VALSARTAN. [Concomitant]
     Active Substance: VALSARTAN
  7. VITAMIN C [Concomitant]
     Active Substance: ASCORBIC ACID
  8. OMEPREZOLE [Concomitant]
  9. PILOCARPINE [Concomitant]
     Active Substance: PILOCARPINE

REACTIONS (1)
  - Acute kidney injury [None]

NARRATIVE: CASE EVENT DATE: 20141119
